FAERS Safety Report 12420679 (Version 3)
Quarter: 2017Q4

REPORT INFORMATION
  Report Type: Spontaneous
  Country: JP (occurrence: JP)
  Receive Date: 20160531
  Receipt Date: 20171206
  Transmission Date: 20180320
  Serious: Yes (Hospitalization)
  Sender: FDA-Public Use
  Company Number: JP-JNJFOC-20160529047

PATIENT
  Age: 74 Year
  Sex: Male
  Weight: 75.7 kg

DRUGS (6)
  1. HERBESSER [Concomitant]
     Active Substance: DILTIAZEM HYDROCHLORIDE
     Route: 048
     Dates: end: 20160516
  2. DIOVAN [Concomitant]
     Active Substance: VALSARTAN
     Route: 048
     Dates: end: 20160516
  3. XARELTO [Suspect]
     Active Substance: RIVAROXABAN
     Indication: ATRIAL FIBRILLATION
     Dosage: CUMULATIVE DOSE TO FIRST REACTION: 1140 MILLIGRAM
     Route: 048
     Dates: start: 20160326, end: 20160515
  4. XARELTO [Suspect]
     Active Substance: RIVAROXABAN
     Indication: CEREBROVASCULAR ACCIDENT PROPHYLAXIS
     Dosage: CUMULATIVE DOSE TO FIRST REACTION: 1140 MILLIGRAM
     Route: 048
     Dates: start: 20160326, end: 20160515
  5. TAMBOCOR [Concomitant]
     Active Substance: FLECAINIDE ACETATE
     Route: 048
     Dates: start: 20160326, end: 20160516
  6. BISOPROLOL [Concomitant]
     Active Substance: BISOPROLOL
     Route: 062
     Dates: start: 20160514

REACTIONS (2)
  - Cerebral infarction [Recovered/Resolved with Sequelae]
  - Aphasia [Unknown]

NARRATIVE: CASE EVENT DATE: 20160516
